FAERS Safety Report 12607776 (Version 5)
Quarter: 2016Q4

REPORT INFORMATION
  Report Type: Spontaneous
  Country: JP (occurrence: JP)
  Receive Date: 20160729
  Receipt Date: 20161019
  Transmission Date: 20170207
  Serious: Yes (Other)
  Sender: FDA-Public Use
  Company Number: JP-GILEAD-2016-0222433

PATIENT
  Age: 78 Year
  Sex: Female

DRUGS (11)
  1. COPEGUS [Suspect]
     Active Substance: RIBAVIRIN
     Dosage: 400 MG, UNK
     Route: 048
     Dates: start: 20160630
  2. ALDACTONE A [Concomitant]
     Active Substance: SPIRONOLACTONE
  3. SOVALDI [Suspect]
     Active Substance: SOFOSBUVIR
     Indication: CHRONIC HEPATITIS C
     Dosage: 400 MG, UNK
     Route: 048
     Dates: start: 20160602, end: 20160627
  4. BLOPRESS [Concomitant]
     Active Substance: CANDESARTAN CILEXETIL
  5. NORVASC [Concomitant]
     Active Substance: AMLODIPINE BESYLATE
  6. DIASTASE [Concomitant]
     Active Substance: DIASTASE
  7. COPEGUS [Suspect]
     Active Substance: RIBAVIRIN
     Indication: CHRONIC HEPATITIS C
     Dosage: 600 MG, UNK
     Route: 048
     Dates: start: 20160602, end: 20160627
  8. BASEN                              /01290601/ [Concomitant]
     Active Substance: VOGLIBOSE
  9. SOVALDI [Suspect]
     Active Substance: SOFOSBUVIR
     Dosage: 400 MG, UNK
     Route: 048
     Dates: start: 20160630
  10. SELBEX [Concomitant]
     Active Substance: TEPRENONE
  11. BIOFERMIN                          /01617201/ [Concomitant]
     Active Substance: BACILLUS SUBTILIS\LACTOBACILLUS ACIDOPHILUS\STREPTOCOCCUS FAECAIS

REACTIONS (2)
  - Oedema peripheral [Recovered/Resolved]
  - Haemoglobin decreased [Recovered/Resolved]

NARRATIVE: CASE EVENT DATE: 20160617
